FAERS Safety Report 23888513 (Version 1)
Quarter: 2024Q2

REPORT INFORMATION
  Report Type: Spontaneous
  Country: US (occurrence: None)
  Receive Date: 20240522
  Receipt Date: 20240522
  Transmission Date: 20240716
  Serious: Yes (Other)
  Sender: FDA-Public Use
  Company Number: None

PATIENT
  Age: 66 Year
  Sex: Female

DRUGS (1)
  1. FINGOLIMOD [Suspect]
     Active Substance: FINGOLIMOD
     Indication: Multiple sclerosis
     Dosage: FREQUENCY : DAILY;?

REACTIONS (7)
  - Drug ineffective [None]
  - General physical health deterioration [None]
  - Gait disturbance [None]
  - Muscular weakness [None]
  - Loss of personal independence in daily activities [None]
  - Walking aid user [None]
  - Peroneal nerve palsy [None]
